FAERS Safety Report 17093167 (Version 1)
Quarter: 2019Q4

REPORT INFORMATION
  Report Type: Spontaneous
  Country: GB (occurrence: GB)
  Receive Date: 20191129
  Receipt Date: 20191129
  Transmission Date: 20200122
  Serious: Yes (Life-Threatening)
  Sender: FDA-Public Use
  Company Number: GB-TEVA-2019-GB-1143302

PATIENT
  Age: 45 Year
  Sex: Male
  Weight: 80 kg

DRUGS (15)
  1. OLANZAPINE. [Concomitant]
     Active Substance: OLANZAPINE
     Dosage: 1 DOSAGE FORMS
     Dates: start: 20190624
  2. IBUPROFEN. [Concomitant]
     Active Substance: IBUPROFEN
     Dosage: 2 DOSAGE FORMS
     Dates: start: 20190622, end: 20190622
  3. ZEROCREAM [Concomitant]
     Dosage: APPLY TWO OR THREE TIMES DAILY
     Dates: start: 20190629, end: 20190727
  4. PARACETAMOL [Concomitant]
     Active Substance: ACETAMINOPHEN
     Dosage: 2 DOSAGE FORMS
     Dates: start: 20190701, end: 20190701
  5. LOPERAMIDE [Concomitant]
     Active Substance: LOPERAMIDE
     Dosage: TAKE TWO CAPSULES TO START AND THEN ONE CAPSULE...
     Dates: start: 20190726, end: 20190728
  6. COCODAMOL [Concomitant]
     Active Substance: ACETAMINOPHEN\CODEINE PHOSPHATE
     Dosage: 2 DOSAGE FORMS
     Dates: start: 20190801, end: 20190806
  7. ANUSOL NOS [Concomitant]
     Active Substance: BALSAM PERU\BENZYL BENZOATE\BISMUTH HYDROXIDE\BISMUTH SUBGALLATE\HYDROCORTISONE ACETATE\ZINC OXIDE
     Dosage: APPLY MORNING AND EVENING AND AFTER EACH BOWL M...
     Dates: start: 20190708, end: 20190715
  8. SERTRALINE [Concomitant]
     Active Substance: SERTRALINE HYDROCHLORIDE
     Dosage: 1 DOSAGE FORMS
     Dates: start: 20190618
  9. COLECALCIFEROL [Concomitant]
     Active Substance: CHOLECALCIFEROL
     Dosage: 1 DOSAGE FORMS
     Dates: start: 20190604
  10. ZEPATIER [Concomitant]
     Active Substance: ELBASVIR\GRAZOPREVIR
     Dosage: 1 TABLET, 1 DOSAGE FORMS
     Dates: start: 20190705, end: 20190822
  11. MEBEVERINE HYDROCHLORIDE [Concomitant]
     Active Substance: MEBEVERINE HYDROCHLORIDE
     Dosage: 1 DOSAGE FORMS
     Dates: start: 20190604, end: 20190819
  12. PHENOXYMETHYLPENICILLIN [Suspect]
     Active Substance: PENICILLIN V
     Dosage: 250 MG
     Dates: start: 20190905
  13. VITAMIN B [Concomitant]
     Active Substance: VITAMIN B
     Dosage: 6 DOSAGE FORMS
     Dates: start: 20190610, end: 20190617
  14. OMEPRAZOLE. [Concomitant]
     Active Substance: OMEPRAZOLE
     Dosage: 1 DOSAGE FORMS
     Dates: start: 20190604
  15. THIAMINE. [Concomitant]
     Active Substance: THIAMINE
     Dosage: 2 DOSAGE FORMS
     Dates: start: 20190610, end: 20190617

REACTIONS (1)
  - Drug hypersensitivity [Not Recovered/Not Resolved]

NARRATIVE: CASE EVENT DATE: 20190908
